FAERS Safety Report 5482512-5 (Version None)
Quarter: 2007Q4

REPORT INFORMATION
  Report Type: 
  Country: None (occurrence: None)
  Receive Date: 20071011
  Receipt Date: 20070613
  Transmission Date: 20080405
  Serious: No
  Sender: FDA-Public Use
  Company Number: A0655900A

PATIENT
  Age: 68 Year
  Sex: Female

DRUGS (6)
  1. TYKERB [Suspect]
     Indication: BREAST CANCER
     Dosage: 1250MG PER DAY
     Route: 048
     Dates: start: 20070612
  2. XELODA [Concomitant]
  3. BLOOD THINNER [Concomitant]
  4. POTASSIUM CHLORIDE [Concomitant]
  5. LASIX [Concomitant]
  6. BENICAR [Concomitant]

REACTIONS (3)
  - ANOREXIA [None]
  - FATIGUE [None]
  - NAUSEA [None]
